FAERS Safety Report 20158272 (Version 1)
Quarter: 2021Q4

REPORT INFORMATION
  Report Type: Spontaneous
  Country: US (occurrence: US)
  Receive Date: 20211207
  Receipt Date: 20211207
  Transmission Date: 20220304
  Serious: No
  Sender: FDA-Public Use
  Company Number: US-SANOFI-00878860

PATIENT
  Age: 13 Year
  Sex: Female

DRUGS (1)
  1. ALDURAZYME [Suspect]
     Active Substance: LARONIDASE
     Dosage: 104 MG, QW
     Route: 041
     Dates: start: 20171220

REACTIONS (1)
  - Malaise [Not Recovered/Not Resolved]
